FAERS Safety Report 4450684-7 (Version None)
Quarter: 2004Q3

REPORT INFORMATION
  Report Type: 
  Country: None (occurrence: None)
  Receive Date: 20040914
  Receipt Date: 20040914
  Transmission Date: 20050211
  Serious: Yes (Hospitalization)
  Sender: FDA-Public Use
  Company Number: None

PATIENT
  Sex: Male
  Weight: 95.9 kg

DRUGS (10)
  1. IBUPROFEN [Suspect]
     Indication: PAIN
     Dosage: 1200MG  QHS  ORAL
     Route: 048
     Dates: start: 19990421, end: 20040512
  2. BACITRACIN/NEOMYCIN/POLYMIXIN [Concomitant]
  3. CHLORHEXIDINE GLUCONATE [Concomitant]
  4. NYSTATIN [Concomitant]
  5. QUININE SULFATE [Concomitant]
  6. ALLOPURINOL [Concomitant]
  7. HYDRATED BASE (GM) [Concomitant]
  8. FLUTICASONE PROP [Concomitant]
  9. GLYBURIDE [Concomitant]
  10. SIMVASTATIN [Concomitant]

REACTIONS (3)
  - ASTHENIA [None]
  - HAEMATEMESIS [None]
  - MELAENA [None]
